FAERS Safety Report 7394879-1 (Version None)
Quarter: 2011Q2

REPORT INFORMATION
  Report Type: 
  Country: None (occurrence: None)
  Receive Date: 20110405
  Receipt Date: 20110329
  Transmission Date: 20111010
  Serious: Yes (Other)
  Sender: FDA-Public Use
  Company Number: A0921327A

PATIENT
  Age: 73 Year
  Sex: Female
  Weight: 93 kg

DRUGS (1)
  1. FLOLAN [Suspect]
     Indication: PULMONARY ARTERIAL HYPERTENSION
     Dates: start: 20090803

REACTIONS (3)
  - PNEUMONIA [None]
  - DIARRHOEA [None]
  - CATHETER SITE INFECTION [None]
